FAERS Safety Report 19972930 (Version 1)
Quarter: 2021Q4

REPORT INFORMATION
  Report Type: Report from Study
  Country: MX (occurrence: MX)
  Receive Date: 20211019
  Receipt Date: 20211019
  Transmission Date: 20220303
  Serious: Yes (Death)
  Sender: FDA-Public Use
  Company Number: MX-BRISTOL-MYERS SQUIBB COMPANY-BMS-2021-107296

PATIENT
  Age: 75 Year
  Sex: Male

DRUGS (1)
  1. NIVOLUMAB [Suspect]
     Active Substance: NIVOLUMAB
     Indication: Lung neoplasm malignant
     Dosage: 240 MILLIGRAM, Q2WK
     Route: 042
     Dates: start: 20210202, end: 20210901

REACTIONS (1)
  - Illness [Fatal]

NARRATIVE: CASE EVENT DATE: 20211003
